FAERS Safety Report 5397231-3 (Version None)
Quarter: 2007Q3

REPORT INFORMATION
  Report Type: 
  Country: None (occurrence: None)
  Receive Date: 20070725
  Receipt Date: 20070713
  Transmission Date: 20080115
  Serious: Yes (Death, Life-Threatening)
  Sender: FDA-Public Use
  Company Number: FR-PFIZER INC-2007058643

PATIENT
  Sex: Male

DRUGS (6)
  1. TRIFLUCAN [Suspect]
     Indication: OESOPHAGEAL CANDIDIASIS
     Dosage: FREQ:FREQUENCY: DAILY
     Route: 048
     Dates: start: 20070326, end: 20070410
  2. ALL OTHER THERAPEUTIC PRODUCTS [Suspect]
     Indication: CHRONIC MYELOID LEUKAEMIA
     Dosage: FREQ:FREQUENCY: DAILY
     Route: 048
     Dates: start: 20060830, end: 20070410
  3. INSULIN [Concomitant]
  4. ALL OTHER THERAPEUTIC PRODUCTS [Concomitant]
  5. VERAPAMIL HYDROCHLORIDE [Concomitant]
  6. MILNACIPRAN HYDROCHLORIDE [Concomitant]

REACTIONS (1)
  - VENTRICULAR TACHYCARDIA [None]
